FAERS Safety Report 20957685 (Version 2)
Quarter: 2022Q3

REPORT INFORMATION
  Report Type: Spontaneous
  Country: JP (occurrence: JP)
  Receive Date: 20220614
  Receipt Date: 20220713
  Transmission Date: 20221027
  Serious: Yes (Other)
  Sender: FDA-Public Use
  Company Number: JP-ONO-2022JP016352

PATIENT
  Age: 51 Year
  Sex: Female

DRUGS (12)
  1. BRAFTOVI [Suspect]
     Active Substance: ENCORAFENIB
     Indication: Colon cancer
     Dosage: UNK MG
     Route: 048
     Dates: start: 20211217, end: 20220122
  2. BRAFTOVI [Suspect]
     Active Substance: ENCORAFENIB
     Dosage: UNK MG
     Route: 048
     Dates: start: 20220304, end: 20220422
  3. BRAFTOVI [Suspect]
     Active Substance: ENCORAFENIB
     Dosage: UNK MG
     Route: 048
     Dates: start: 20220506, end: 20220513
  4. BRAFTOVI [Suspect]
     Active Substance: ENCORAFENIB
     Dosage: UNK MG
     Route: 048
     Dates: start: 20220704
  5. MEKTOVI [Suspect]
     Active Substance: BINIMETINIB
     Indication: Colon cancer
     Dosage: UNK MG
     Route: 048
     Dates: start: 20211217, end: 20220122
  6. MEKTOVI [Suspect]
     Active Substance: BINIMETINIB
     Dosage: UNK MG
     Route: 048
     Dates: start: 20220304, end: 20220422
  7. MEKTOVI [Suspect]
     Active Substance: BINIMETINIB
     Dosage: UNK MG
     Route: 048
     Dates: start: 20220506, end: 20220513
  8. MEKTOVI [Suspect]
     Active Substance: BINIMETINIB
     Dosage: UNK MG
     Route: 048
     Dates: start: 20220704
  9. CETUXIMAB [Concomitant]
     Active Substance: CETUXIMAB
     Indication: Colon cancer
     Dosage: UNK
     Dates: start: 20211217
  10. CETUXIMAB [Concomitant]
     Active Substance: CETUXIMAB
     Dosage: UNK
     Dates: start: 20220304
  11. CETUXIMAB [Concomitant]
     Active Substance: CETUXIMAB
     Dosage: UNK
     Dates: start: 20220506
  12. CETUXIMAB [Concomitant]
     Active Substance: CETUXIMAB
     Dosage: UNK
     Dates: start: 20220704

REACTIONS (6)
  - Macular detachment [Recovering/Resolving]
  - Intestinal perforation [Unknown]
  - Colonic abscess [Unknown]
  - Intestinal obstruction [Unknown]
  - Weight decreased [Unknown]
  - Neoplasm progression [Unknown]

NARRATIVE: CASE EVENT DATE: 20220415
